FAERS Safety Report 14607433 (Version 2)
Quarter: 2018Q1

REPORT INFORMATION
  Report Type: Spontaneous
  Country: US (occurrence: US)
  Receive Date: 20180307
  Receipt Date: 20180309
  Transmission Date: 20180509
  Serious: No
  Sender: FDA-Public Use
  Company Number: US-PFIZER INC-2018094371

PATIENT
  Sex: Male

DRUGS (1)
  1. LYRICA [Suspect]
     Active Substance: PREGABALIN
     Dosage: 50 MG, UNK

REACTIONS (5)
  - Disturbance in attention [Unknown]
  - Hyperhidrosis [Recovering/Resolving]
  - Dry mouth [Unknown]
  - Hallucination, auditory [Recovering/Resolving]
  - Pain [Unknown]
